FAERS Safety Report 9552701 (Version 2)
Quarter: 2013Q3

REPORT INFORMATION
  Report Type: Spontaneous
  Country: US (occurrence: US)
  Receive Date: 20130925
  Receipt Date: 20130925
  Transmission Date: 20140515
  Serious: Yes (Hospitalization, Disabling, Other)
  Sender: FDA-Public Use
  Company Number: US-NAPPMUNDI-USA-2012-0092125

PATIENT
  Age: 56 Year
  Sex: Female
  Weight: 88.89 kg

DRUGS (3)
  1. MORPHINE SULFATE (SIMILAR TO NDA 19-516) [Suspect]
     Indication: PAIN
     Dosage: 60 MG, BID
     Route: 048
     Dates: start: 20120305, end: 20120816
  2. PERCOCET /00867901/ [Suspect]
     Indication: PAIN
     Dosage: 10 MG, TID PRN
     Route: 048
     Dates: start: 20110503, end: 20120816
  3. COCAINE [Suspect]
     Indication: DRUG ABUSE

REACTIONS (2)
  - Intentional overdose [Not Recovered/Not Resolved]
  - Substance abuse [Unknown]
